FAERS Safety Report 11049142 (Version 1)
Quarter: 2015Q2

REPORT INFORMATION
  Report Type: Spontaneous
  Country: FI (occurrence: FI)
  Receive Date: 20150420
  Receipt Date: 20150420
  Transmission Date: 20150821
  Serious: Yes (Hospitalization)
  Sender: FDA-Public Use
  Company Number: FI-009507513-1504FIN009161

PATIENT
  Age: 43 Year
  Sex: Female

DRUGS (11)
  1. AERINAZE [Suspect]
     Active Substance: DESLORATADINE\PSEUDOEPHEDRINE
     Dosage: 1 UNK, UNK
     Dates: start: 20150214, end: 20150214
  2. LINATIL [Concomitant]
     Active Substance: ENALAPRIL MALEATE
     Indication: HYPERTENSION
     Dosage: UNK, QD
     Dates: start: 20140101
  3. THYROXIN [Concomitant]
     Active Substance: LEVOTHYROXINE
     Indication: HYPOTHYROIDISM
     Dosage: 1.5 FOR 6 DAYS+1 TABLET 1DAY/WEEK
     Dates: start: 19990101
  4. FLIXONASE [Concomitant]
     Active Substance: FLUTICASONE PROPIONATE
     Indication: OEDEMA MUCOSAL
     Dosage: UNK, ONCE
     Dates: start: 20140101
  5. MEZINA CHELLO FORTE [Concomitant]
     Indication: MENOPAUSAL SYMPTOMS
     Dosage: UNK, QD
     Dates: start: 20140101
  6. MELATONIN [Concomitant]
     Active Substance: MELATONIN
     Indication: SLEEP DISORDER
     Dosage: UNK, 1-2X1
     Dates: start: 20140101
  7. MIRENA [Concomitant]
     Active Substance: LEVONORGESTREL
     Indication: CONTRACEPTION
     Dosage: UNKNOWN
  8. BISOPROLOL RATIOPHARM [Concomitant]
     Active Substance: BISOPROLOL
     Indication: HYPERTENSION
     Dosage: UNK, 1X1-2
     Dates: start: 20130101
  9. XYZAL [Concomitant]
     Active Substance: LEVOCETIRIZINE DIHYDROCHLORIDE
     Dosage: UNK
     Dates: start: 20150210, end: 20150214
  10. AERINAZE [Suspect]
     Active Substance: DESLORATADINE\PSEUDOEPHEDRINE
     Indication: NASAL CONGESTION
     Dosage: 1 DF, BID
     Route: 048
     Dates: start: 20150210, end: 20150214
  11. SYMBICORT [Concomitant]
     Active Substance: BUDESONIDE\FORMOTEROL FUMARATE DIHYDRATE
     Indication: ASTHMA
     Dosage: UNK, 1-2X1-4
     Dates: start: 20090101

REACTIONS (16)
  - Dizziness [None]
  - Cold sweat [Recovered/Resolved]
  - Headache [Recovered/Resolved]
  - Feeling abnormal [Recovered/Resolved]
  - Dyslexia [Recovered/Resolved]
  - Clumsiness [None]
  - Dyskinesia [Recovered/Resolved]
  - Presyncope [Recovered/Resolved]
  - Dyspnoea [Recovered/Resolved]
  - Muscle tightness [Recovered/Resolved]
  - Muscle tightness [None]
  - Laboratory test abnormal [Recovered/Resolved]
  - Cerebrovascular disorder [Recovered/Resolved]
  - Sensory disturbance [Recovered/Resolved]
  - Dizziness [Recovered/Resolved]
  - Nausea [Recovered/Resolved]

NARRATIVE: CASE EVENT DATE: 20150213
